FAERS Safety Report 10257137 (Version 1)
Quarter: 2014Q2

REPORT INFORMATION
  Report Type: Spontaneous
  Country: DE (occurrence: DE)
  Receive Date: 20140625
  Receipt Date: 20140625
  Transmission Date: 20141212
  Serious: Yes (Congenital Anomaly, Other)
  Sender: FDA-Public Use
  Company Number: DE-DRREDDYS-GER/GER/14/0041284

PATIENT
  Age: 0 Year
  Sex: Female
  Weight: 4.05 kg

DRUGS (6)
  1. CETIRIZINE [Suspect]
     Indication: PRODUCT USED FOR UNKNOWN INDICATION
     Route: 064
  2. AZATHIOPRINE [Suspect]
     Indication: PRODUCT USED FOR UNKNOWN INDICATION
     Route: 064
  3. LEVOTHYROXINE SODIUM [Suspect]
     Indication: PRODUCT USED FOR UNKNOWN INDICATION
     Route: 064
     Dates: start: 20130204, end: 20131112
  4. PENTASA XTEND [Suspect]
     Indication: PRODUCT USED FOR UNKNOWN INDICATION
     Route: 064
     Dates: start: 20130204, end: 20131112
  5. DERMATOP [Concomitant]
     Indication: PRODUCT USED FOR UNKNOWN INDICATION
     Route: 064
  6. FOLIO [Concomitant]
     Indication: PRODUCT USED FOR UNKNOWN INDICATION
     Dosage: 4 MG PER DAY
     Route: 064
     Dates: start: 20130204, end: 20131112

REACTIONS (7)
  - Congenital large intestinal atresia [Recovered/Resolved with Sequelae]
  - Foetal exposure during pregnancy [Unknown]
  - Flatulence [None]
  - Abdominal pain [None]
  - Feeding disorder neonatal [None]
  - Meconium ileus [None]
  - Maternal drugs affecting foetus [None]
